FAERS Safety Report 17487522 (Version 1)
Quarter: 2020Q1

REPORT INFORMATION
  Report Type: Report from Study
  Country: JP (occurrence: JP)
  Receive Date: 20200303
  Receipt Date: 20200303
  Transmission Date: 20200409
  Serious: Yes (Other)
  Sender: FDA-Public Use
  Company Number: JP-AMGEN-JPNCT2020033731

PATIENT
  Age: 3 Year
  Sex: Female

DRUGS (10)
  1. FILGRASTIM [Suspect]
     Active Substance: FILGRASTIM
     Indication: PRODUCT USED FOR UNKNOWN INDICATION
     Dosage: 5 MICROGRAM/KILOGRAM
     Route: 058
  2. MORPHINE [MORPHINE HYDROCHLORIDE] [Concomitant]
     Active Substance: MORPHINE HYDROCHLORIDE
     Indication: PAIN PROPHYLAXIS
     Dosage: UNK
     Route: 065
  3. ACETAMINOPHEN. [Concomitant]
     Active Substance: ACETAMINOPHEN
     Indication: SUPPORTIVE CARE
     Dosage: 10 MILLIGRAM/KILOGRAM, (MAXIMUM AT 650 MG)
     Route: 065
  4. ATARAX-P [HYDROXYZINE HYDROCHLORIDE] [Concomitant]
     Indication: SUPPORTIVE CARE
     Dosage: 0.5-1 MG/KG (MAXIMUM AT 50 MG)
     Route: 065
  5. LIDOCAINE. [Concomitant]
     Active Substance: LIDOCAINE
     Indication: PAIN PROPHYLAXIS
     Dosage: 2 MILLIGRAM/KILOGRAM
     Route: 041
  6. IMUNACE [Concomitant]
     Active Substance: TECELEUKIN
     Dosage: 1000000 U/M2 (2ND WEEK, 24-HOUR DRIP INFUSION)
     Route: 041
  7. UNITUXIN [Concomitant]
     Active Substance: DINUTUXIMAB
     Indication: NEUROBLASTOMA
     Dosage: 17.5 MILLIGRAM/SQ. METER, (10-20-HOUR DRIP INFUSION)
     Route: 041
  8. ISOTONIC SODIUM CHLORIDE SOLUTION [Concomitant]
     Active Substance: SODIUM CHLORIDE
     Indication: NEUROBLASTOMA
     Dosage: 10 MILLIGRAM/KILOGRAM
     Route: 041
  9. IMUNACE [Concomitant]
     Active Substance: TECELEUKIN
     Indication: NEUROBLASTOMA
     Dosage: 750000 U/M2 (1ST WEEK, 24-HOUR DRIP INFUSION)
     Route: 041
  10. LIDOCAINE. [Concomitant]
     Active Substance: LIDOCAINE
     Dosage: 1MG/KG/H
     Route: 041

REACTIONS (77)
  - Hypoalbuminaemia [Recovered/Resolved]
  - Hypoalbuminaemia [Recovered/Resolved]
  - Glucose urine present [Recovered/Resolved]
  - Blood creatinine increased [Recovered/Resolved]
  - Proteinuria [Recovered/Resolved]
  - Anaemia [Recovered/Resolved]
  - Platelet count decreased [Recovered/Resolved]
  - Dermatitis exfoliative generalised [Recovered/Resolved]
  - Blood urea increased [Recovered/Resolved]
  - Face oedema [Recovered/Resolved]
  - Pruritus [Recovered/Resolved]
  - White blood cells urine positive [Recovered/Resolved]
  - Proteinuria [Recovered/Resolved]
  - Constipation [Recovered/Resolved]
  - Pain in extremity [Recovered/Resolved]
  - Headache [Recovered/Resolved]
  - Blood urea increased [Recovered/Resolved]
  - Hypernatraemia [Recovered/Resolved]
  - Face oedema [Recovered/Resolved]
  - Face oedema [Recovered/Resolved]
  - Hypoalbuminaemia [Recovered/Resolved]
  - White blood cells urine positive [Recovered/Resolved]
  - Protein urine [Recovered/Resolved]
  - Proteinuria [Recovered/Resolved]
  - Decreased appetite [Recovered/Resolved]
  - Hypophosphataemia [Not Recovered/Not Resolved]
  - Glucose urine present [Recovered/Resolved]
  - White blood cells urine positive [Recovered/Resolved]
  - Alanine aminotransferase increased [Recovered/Resolved]
  - Blood creatinine increased [Recovered/Resolved]
  - Proteinuria [Recovered/Resolved]
  - Constipation [Recovered/Resolved]
  - Pain in extremity [Recovered/Resolved]
  - Platelet count decreased [Recovered/Resolved]
  - Pyrexia [Recovered/Resolved]
  - Inguinal hernia [Recovered/Resolved]
  - Eczema [Recovered/Resolved]
  - Abdominal pain [Recovered/Resolved]
  - Glucose urine present [Recovered/Resolved]
  - Glucose urine present [Recovered/Resolved]
  - Haematuria [Recovered/Resolved]
  - Diarrhoea [Recovered/Resolved]
  - Anaemia [Recovered/Resolved]
  - Pyrexia [Recovered/Resolved]
  - Hyperkalaemia [Recovered/Resolved]
  - Hyperkalaemia [Recovered/Resolved]
  - Blood urea increased [Recovered/Resolved]
  - Face oedema [Recovered/Resolved]
  - White blood cells urine positive [Recovered/Resolved]
  - Blood creatinine increased [Not Recovered/Not Resolved]
  - Proteinuria [Recovered/Resolved]
  - Anaemia [Recovered/Resolved]
  - Pyrexia [Recovered/Resolved]
  - Hypoxia [Recovered/Resolved]
  - Blood urea increased [Not Recovered/Not Resolved]
  - Eyelid oedema [Recovered/Resolved]
  - Face oedema [Recovered/Resolved]
  - Face oedema [Recovered/Resolved]
  - Pruritus [Recovered/Resolved]
  - Glucose urine present [Recovered/Resolved]
  - Aspartate aminotransferase increased [Recovered/Resolved]
  - Blood creatinine increased [Recovered/Resolved]
  - Proteinuria [Recovered/Resolved]
  - Pain in extremity [Recovered/Resolved]
  - Pyrexia [Recovered/Resolved]
  - Hyperkalaemia [Recovered/Resolved]
  - Blood urea increased [Recovered/Resolved]
  - Lymphocyte count decreased [Recovered/Resolved]
  - Hypermagnesaemia [Not Recovered/Not Resolved]
  - Hypoalbuminaemia [Recovered/Resolved]
  - Hyponatraemia [Recovered/Resolved]
  - Glucose urine present [Recovered/Resolved]
  - Gamma-glutamyltransferase increased [Not Recovered/Not Resolved]
  - Proteinuria [Recovered/Resolved]
  - Anaemia [Recovered/Resolved]
  - Pain [Recovered/Resolved]
  - Pyrexia [Recovered/Resolved]

NARRATIVE: CASE EVENT DATE: 20170219
